FAERS Safety Report 23055760 (Version 1)
Quarter: 2023Q4

REPORT INFORMATION
  Report Type: Spontaneous
  Country: US (occurrence: None)
  Receive Date: 20231011
  Receipt Date: 20231011
  Transmission Date: 20240109
  Serious: No
  Sender: FDA-Public Use
  Company Number: None

PATIENT
  Sex: Female
  Weight: 141 kg

DRUGS (5)
  1. FLUOROURACIL [Suspect]
     Active Substance: FLUOROURACIL
  2. XELODA [Concomitant]
     Active Substance: CAPECITABINE
  3. IRINOTECAN (CPT- 340 MG 11, CAMPTOSAR) [Concomitant]
  4. LEUCOVORIN CALCIUM [Concomitant]
     Active Substance: LEUCOVORIN CALCIUM
  5. ELOXATIN [Concomitant]
     Active Substance: OXALIPLATIN

REACTIONS (3)
  - Diarrhoea [None]
  - Therapy interrupted [None]
  - Hypokalaemia [None]

NARRATIVE: CASE EVENT DATE: 20230918
